FAERS Safety Report 13558125 (Version 1)
Quarter: 2017Q2

REPORT INFORMATION
  Report Type: Spontaneous
  Country: US (occurrence: US)
  Receive Date: 20170517
  Receipt Date: 20170517
  Transmission Date: 20170830
  Serious: Yes (Life-Threatening, Hospitalization)
  Sender: FDA-Public Use
  Company Number: None

PATIENT
  Age: 57 Year
  Sex: Male
  Weight: 101.5 kg

DRUGS (1)
  1. CEFAZOLIN [Suspect]
     Active Substance: CEFAZOLIN
     Indication: DRUG THERAPY
     Dates: start: 20161206, end: 20161206

REACTIONS (5)
  - Anaemia [None]
  - Anaphylactic reaction [None]
  - Hypertension [None]
  - Acute respiratory failure [None]
  - Hypokalaemia [None]

NARRATIVE: CASE EVENT DATE: 20161206
